FAERS Safety Report 8337920-1 (Version None)
Quarter: 2012Q1

REPORT INFORMATION
  Report Type: 
  Country: None (occurrence: None)
  Receive Date: 20120329
  Receipt Date: 20101207
  Transmission Date: 20120608
  Serious: Yes (Other)
  Sender: FDA-Public Use
  Company Number: PHHY2010US83594

PATIENT
  Sex: Male

DRUGS (1)
  1. EXELON [Suspect]
     Dosage: 4.6MG, TRANSDERMAL
     Route: 062

REACTIONS (3)
  - ABDOMINAL DISCOMFORT [None]
  - CATARACT [None]
  - FATIGUE [None]
